FAERS Safety Report 9673406 (Version 2)
Quarter: 2013Q4

REPORT INFORMATION
  Report Type: Spontaneous
  Country: US (occurrence: US)
  Receive Date: 20131106
  Receipt Date: 20131106
  Transmission Date: 20140711
  Serious: No
  Sender: FDA-Public Use
  Company Number: US-AMGEN-USASP2013069655

PATIENT
  Age: 42 Year
  Sex: Male
  Weight: 103.86 kg

DRUGS (6)
  1. ENBREL [Suspect]
     Indication: ANKYLOSING SPONDYLITIS
     Dosage: 50 MG, QWK
     Route: 058
     Dates: start: 20130725
  2. CALCIUM + VIT D [Concomitant]
     Dosage: 600 MG, BID
     Route: 048
  3. PREDNISONE [Concomitant]
     Indication: SPONDYLITIS
     Dosage: 5 MG, BID
     Route: 048
  4. OMEPRAZOLE [Concomitant]
     Indication: GASTROOESOPHAGEAL REFLUX DISEASE
     Dosage: 20 MG, QD
     Route: 048
  5. PRED FORTE [Concomitant]
     Indication: IRITIS
     Dosage: UNK UNK, BID, 1 %
  6. LORTAB                             /00607101/ [Concomitant]
     Indication: SPONDYLITIS
     Dosage: 7.5/500, Q6H
     Route: 048

REACTIONS (4)
  - Insomnia [Not Recovered/Not Resolved]
  - Headache [Not Recovered/Not Resolved]
  - Rash [Not Recovered/Not Resolved]
  - Ear infection [Not Recovered/Not Resolved]
